FAERS Safety Report 7005562-6 (Version None)
Quarter: 2010Q3

REPORT INFORMATION
  Report Type: 
  Country: None (occurrence: None)
  Receive Date: 20100921
  Receipt Date: 20100915
  Transmission Date: 20110219
  Serious: Yes (Hospitalization)
  Sender: FDA-Public Use
  Company Number: A0802653A

PATIENT
  Age: 49 Year
  Sex: Female
  Weight: 131.8 kg

DRUGS (9)
  1. AVANDIA [Suspect]
     Indication: DIABETES MELLITUS
     Dosage: 8MG TWICE PER DAY
     Route: 048
     Dates: start: 20040224, end: 20070508
  2. GLUCOTROL [Concomitant]
  3. ZOCOR [Concomitant]
  4. LOTREL [Concomitant]
  5. PREVACID [Concomitant]
  6. SINGULAIR [Concomitant]
  7. VESICARE [Concomitant]
  8. ALBUTEROL [Concomitant]
  9. CELEBREX [Concomitant]

REACTIONS (7)
  - ATRIAL FIBRILLATION [None]
  - CARDIAC DISORDER [None]
  - CARDIAC FAILURE [None]
  - CARDIOVASCULAR DISORDER [None]
  - CORONARY ARTERY DISEASE [None]
  - ISCHAEMIC CARDIOMYOPATHY [None]
  - PERIPHERAL VASCULAR DISORDER [None]
